FAERS Safety Report 16316217 (Version 1)
Quarter: 2019Q2

REPORT INFORMATION
  Report Type: Spontaneous
  Country: US (occurrence: US)
  Receive Date: 20190515
  Receipt Date: 20190515
  Transmission Date: 20190711
  Serious: No
  Sender: FDA-Public Use
  Company Number: US-SA-2019SA128876

PATIENT
  Age: 67 Year
  Sex: Male

DRUGS (4)
  1. NICOTINE. [Suspect]
     Active Substance: NICOTINE
  2. PRALUENT [Suspect]
     Active Substance: ALIROCUMAB
     Indication: ARTERIOSCLEROSIS
     Dosage: 75 MG, QOW
     Route: 058
     Dates: start: 20160729
  3. NICOTINE. [Suspect]
     Active Substance: NICOTINE
     Dosage: UNK
  4. LOSARTAN. [Concomitant]
     Active Substance: LOSARTAN

REACTIONS (1)
  - Epistaxis [Unknown]
